FAERS Safety Report 19793585 (Version 1)
Quarter: 2021Q3

REPORT INFORMATION
  Report Type: Spontaneous
  Country: CA (occurrence: CA)
  Receive Date: 20210906
  Receipt Date: 20210906
  Transmission Date: 20211014
  Serious: Yes (Hospitalization, Other)
  Sender: FDA-Public Use
  Company Number: CA-PFIZER INC-2021422959

PATIENT
  Age: 61 Year
  Sex: Male
  Weight: 83.91 kg

DRUGS (1)
  1. XELJANZ [Suspect]
     Active Substance: TOFACITINIB CITRATE
     Indication: RHEUMATOID ARTHRITIS
     Dosage: 1 DF
     Route: 048

REACTIONS (3)
  - Clostridium difficile infection [Unknown]
  - Nephrolithiasis [Unknown]
  - Kidney infection [Unknown]
